FAERS Safety Report 7070742-0 (Version None)
Quarter: 2010Q4

REPORT INFORMATION
  Report Type: 
  Country: None (occurrence: None)
  Receive Date: 20101027
  Receipt Date: 20101027
  Transmission Date: 20110411
  Serious: Yes (Other)
  Sender: FDA-Public Use
  Company Number: None

PATIENT
  Age: 49 Year
  Sex: Male
  Weight: 65.318 kg

DRUGS (2)
  1. REYATAZ [Suspect]
     Indication: HIV INFECTION
     Dosage: 300 MG QDAY PO
     Route: 048
     Dates: start: 20060731, end: 20101015
  2. NORVIR [Suspect]
     Dosage: 100 MG QDAY PO
     Route: 048

REACTIONS (1)
  - NEPHROLITHIASIS [None]
